FAERS Safety Report 9467751 (Version 2)
Quarter: 2013Q3

REPORT INFORMATION
  Report Type: Spontaneous
  Country: US (occurrence: US)
  Receive Date: 20130821
  Receipt Date: 20130821
  Transmission Date: 20140515
  Serious: Yes (Death)
  Sender: FDA-Public Use
  Company Number: US-ASTELLAS-2013US007070

PATIENT
  Age: 76 Year
  Sex: Male

DRUGS (2)
  1. XTANDI [Suspect]
     Indication: PROSTATE CANCER
     Dosage: 160 MG, UID/QD
     Route: 048
     Dates: start: 20130620, end: 20130801
  2. XTANDI [Suspect]
     Indication: ILL-DEFINED DISORDER

REACTIONS (3)
  - Death [Fatal]
  - Pyrexia [Unknown]
  - Nausea [Unknown]
